FAERS Safety Report 7934752-0 (Version None)
Quarter: 2011Q4

REPORT INFORMATION
  Report Type: 
  Country: None (occurrence: None)
  Receive Date: 20111122
  Receipt Date: 20110803
  Transmission Date: 20120403
  Serious: No
  Sender: FDA-Public Use
  Company Number: US-BAYER-2011-069256

PATIENT
  Age: 79 Year
  Sex: Male

DRUGS (6)
  1. AMIODARONE HCL [Concomitant]
  2. QUINAPRIL [Concomitant]
  3. LEVITRA [Suspect]
     Indication: SEXUAL DYSFUNCTION
     Dosage: 10 MG, QD
     Route: 048
     Dates: start: 20110731
  4. COUMADIN [Concomitant]
  5. ZOCOR [Concomitant]
  6. TOPROL-XL [Concomitant]

REACTIONS (1)
  - HEADACHE [None]
